FAERS Safety Report 4370684-5 (Version None)
Quarter: 2004Q2

REPORT INFORMATION
  Report Type: 
  Country: None (occurrence: None)
  Receive Date: 20040604
  Receipt Date: 20040525
  Transmission Date: 20050107
  Serious: Yes (Hospitalization)
  Sender: FDA-Public Use
  Company Number: 200414092US

PATIENT
  Age: 76 Year
  Sex: Female

DRUGS (2)
  1. DOCETAXEL [Suspect]
     Indication: NON-SMALL CELL LUNG CANCER
     Route: 042
     Dates: start: 20040510, end: 20040517
  2. IRESSA [Suspect]
     Indication: NON-SMALL CELL LUNG CANCER
     Route: 048
     Dates: start: 20040510

REACTIONS (5)
  - DEHYDRATION [None]
  - DIARRHOEA [None]
  - HYPOCALCAEMIA [None]
  - NAUSEA [None]
  - VOMITING [None]
